FAERS Safety Report 23790667 (Version 1)
Quarter: 2024Q2

REPORT INFORMATION
  Report Type: Report from Study
  Country: NL (occurrence: NL)
  Receive Date: 20240427
  Receipt Date: 20240427
  Transmission Date: 20240716
  Serious: Yes (Hospitalization, Other)
  Sender: FDA-Public Use
  Company Number: NL-002147023-NVSC2023NL105517

PATIENT
  Age: 50 Year
  Sex: Female
  Weight: 102.2 kg

DRUGS (4)
  1. CISPLATIN [Suspect]
     Active Substance: CISPLATIN
     Indication: Cholangiocarcinoma
     Dosage: 56 MG, Q3W (ON DAYS 1 AND 8)
     Route: 042
     Dates: start: 20230330, end: 20230413
  2. RIVAROXABAN [Concomitant]
     Active Substance: RIVAROXABAN
     Indication: Product used for unknown indication
     Dosage: UNK
     Route: 065
     Dates: start: 202004
  3. GEMCITABINE [Suspect]
     Active Substance: GEMCITABINE
     Indication: Cholangiocarcinoma
     Dosage: 2240 MG, Q3W (ON DAYS 1 AND 8), GEMCITABINE HYDROCHLORIDE
     Route: 042
     Dates: start: 20230330, end: 20230413
  4. OXYGEN [Concomitant]
     Active Substance: OXYGEN
     Indication: Product used for unknown indication
     Dosage: UNK
     Route: 065
     Dates: start: 202207

REACTIONS (17)
  - Heart rate increased [Unknown]
  - Platelet count decreased [Recovered/Resolved with Sequelae]
  - Anaemia [Recovered/Resolved with Sequelae]
  - Hyperhidrosis [Unknown]
  - Fatigue [Unknown]
  - Vomiting [Unknown]
  - General physical health deterioration [Unknown]
  - Cough [Unknown]
  - Nausea [Unknown]
  - Chills [Unknown]
  - Hypophagia [Recovering/Resolving]
  - Dyspnoea [Unknown]
  - Myelosuppression [Unknown]
  - Chest discomfort [Unknown]
  - White blood cell count decreased [Recovered/Resolved with Sequelae]
  - Presyncope [Unknown]
  - Anaemia [Recovered/Resolved with Sequelae]

NARRATIVE: CASE EVENT DATE: 20230406
